FAERS Safety Report 6196871-1 (Version None)
Quarter: 2009Q2

REPORT INFORMATION
  Report Type: 
  Country: None (occurrence: None)
  Receive Date: 20090518
  Receipt Date: 20090518
  Transmission Date: 20091009
  Serious: Yes (Other)
  Sender: FDA-Public Use
  Company Number: None

PATIENT
  Sex: Female
  Weight: 89.3586 kg

DRUGS (1)
  1. SERTRALINE HYDROCHLORIDE [Suspect]
     Indication: STRESS
     Dosage: 1 TABLET DAILY PO
     Route: 048
     Dates: start: 20090508, end: 20090511

REACTIONS (12)
  - BACK PAIN [None]
  - BURNING SENSATION [None]
  - CHILLS [None]
  - COLD SWEAT [None]
  - DIZZINESS [None]
  - HEADACHE [None]
  - HYPERHIDROSIS [None]
  - MYOPATHY [None]
  - PANIC REACTION [None]
  - PARAESTHESIA [None]
  - PRESYNCOPE [None]
  - SOMNOLENCE [None]
